FAERS Safety Report 17489981 (Version 1)
Quarter: 2020Q1

REPORT INFORMATION
  Report Type: Spontaneous
  Country: US (occurrence: US)
  Receive Date: 20200303
  Receipt Date: 20200303
  Transmission Date: 20200409
  Serious: No
  Sender: FDA-Public Use
  Company Number: US-AKORN PHARMACEUTICALS-2019AKN01433

PATIENT
  Age: 72 Year
  Sex: Male
  Weight: 77.1 kg

DRUGS (12)
  1. MYORISAN [Suspect]
     Active Substance: ISOTRETINOIN
     Indication: ACNE CYSTIC
     Dosage: 40 MG, 1X/DAY
     Route: 048
     Dates: start: 20190325, end: 20190424
  2. CLOPIDOGREL [Concomitant]
     Active Substance: CLOPIDOGREL BISULFATE
  3. DEXILANT [Concomitant]
     Active Substance: DEXLANSOPRAZOLE
  4. DIPENTUM [Concomitant]
     Active Substance: OLSALAZINE SODIUM
  5. OZEMPIC [Concomitant]
     Active Substance: SEMAGLUTIDE
  6. UNSPECIFIED INSULIN [Concomitant]
     Active Substance: INSULIN NOS
  7. TAMSULOSIN [Concomitant]
     Active Substance: TAMSULOSIN
  8. MYORISAN [Suspect]
     Active Substance: ISOTRETINOIN
     Dosage: 40 MG, 2X/DAY
     Route: 048
     Dates: start: 20190424, end: 20190619
  9. VITAMIN D3 [Concomitant]
     Active Substance: CHOLECALCIFEROL
  10. UNSPECIFIED MEDICATION [Concomitant]
     Active Substance: UNSPECIFIED INGREDIENT
  11. MYORISAN [Suspect]
     Active Substance: ISOTRETINOIN
     Dosage: UNK
     Dates: start: 201906, end: 2019
  12. ATORVASTATIN [Concomitant]
     Active Substance: ATORVASTATIN

REACTIONS (4)
  - Off label use [Recovered/Resolved]
  - Dizziness [Recovered/Resolved]
  - Vision blurred [Recovered/Resolved]
  - Nausea [Recovered/Resolved]

NARRATIVE: CASE EVENT DATE: 20190325
